FAERS Safety Report 5267548-1 (Version None)
Quarter: 2007Q1

REPORT INFORMATION
  Report Type: 
  Country: None (occurrence: None)
  Receive Date: 20061213
  Receipt Date: 20050512
  Transmission Date: 20070707
  Serious: Yes (Death)
  Sender: FDA-Public Use
  Company Number: 2005UW05154

PATIENT
  Age: 89 Year
  Sex: Male
  Weight: 69 kg

DRUGS (5)
  1. IRESSA [Suspect]
     Indication: LUNG SQUAMOUS CELL CARCINOMA STAGE UNSPECIFIED
     Dates: start: 20040920, end: 20050110
  2. DIGOXIN [Concomitant]
  3. EPOETIN [Concomitant]
  4. MORPHINE [Concomitant]
  5. ASPIRIN [Concomitant]

REACTIONS (2)
  - ALVEOLITIS [None]
  - INTERSTITIAL LUNG DISEASE [None]
